FAERS Safety Report 17561908 (Version 2)
Quarter: 2022Q1

REPORT INFORMATION
  Report Type: Spontaneous
  Country: DE (occurrence: DE)
  Receive Date: 20200319
  Receipt Date: 20220303
  Transmission Date: 20220423
  Serious: Yes (Death, Life-Threatening, Hospitalization)
  Sender: FDA-Public Use
  Company Number: DE-TEVA-2020-DE-1203765

PATIENT
  Age: 60 Year
  Sex: Male

DRUGS (15)
  1. PREDNISOLONE [Suspect]
     Active Substance: PREDNISOLONE
     Indication: Encephalitis autoimmune
     Dosage: RECEIVED FOR 2 AND HALF YEARS
     Route: 048
  2. PREDNISOLONE [Suspect]
     Active Substance: PREDNISOLONE
     Dosage: TAPERING-REGIMEN
     Route: 048
  3. BORTEZOMIB [Suspect]
     Active Substance: BORTEZOMIB
     Indication: Encephalitis autoimmune
     Dosage: THREE CYCLES AT A DOSE OF 1-1.3 MG/M2
     Route: 065
  4. METHYLPREDNISOLONE [Suspect]
     Active Substance: METHYLPREDNISOLONE
     Indication: Encephalitis autoimmune
     Dosage: 5X500MG
     Route: 065
  5. METHYLPREDNISOLONE [Suspect]
     Active Substance: METHYLPREDNISOLONE
     Dosage: 5X1G
     Route: 065
  6. RITUXIMAB [Suspect]
     Active Substance: RITUXIMAB
     Indication: Encephalitis autoimmune
     Route: 065
  7. IMMUNE GLOBULIN NOS [Suspect]
     Active Substance: IMMUNE GLOBULIN NOS
     Indication: Encephalitis autoimmune
     Dosage: DOSE: 2G/KG
     Route: 042
  8. DARATUMUMAB [Suspect]
     Active Substance: DARATUMUMAB
     Indication: Encephalitis autoimmune
     Dosage: 8 CYCES
     Route: 041
  9. DARATUMUMAB [Suspect]
     Active Substance: DARATUMUMAB
     Dosage: REMAINING FIVE CYCLES
     Route: 041
  10. HUMAN PLASMA [Concomitant]
     Active Substance: HUMAN PLASMA
     Indication: Encephalitis autoimmune
     Dosage: 8X PLASMA EXCHANGE
     Route: 065
  11. HUMAN PLASMA [Concomitant]
     Active Substance: HUMAN PLASMA
     Dosage: 6X PLASMA EXCHANGE
     Route: 065
  12. HUMAN PLASMA [Concomitant]
     Active Substance: HUMAN PLASMA
     Dosage: 12X PLASMA EXCHANGE
     Route: 065
  13. HUMAN PLASMA [Concomitant]
     Active Substance: HUMAN PLASMA
     Dosage: 25X PLASMA EXCHANGE
     Route: 065
  14. ACYCLOVIR [Concomitant]
     Active Substance: ACYCLOVIR
     Indication: Infection prophylaxis
     Dosage: 200 MILLIGRAM DAILY;
     Route: 065
  15. COTRIMOXAZOLE [Concomitant]
     Active Substance: SULFAMETHOXAZOLE\TRIMETHOPRIM
     Indication: Infection prophylaxis
     Dosage: THREE TIMES A WEEK
     Route: 065

REACTIONS (17)
  - Rebound effect [Recovering/Resolving]
  - Urinary tract infection [Unknown]
  - Septic shock [Fatal]
  - Bacterial infection [Fatal]
  - Drug ineffective [Unknown]
  - Seizure [Recovering/Resolving]
  - Cerebellar ataxia [Recovering/Resolving]
  - Neuromyotonia [Recovering/Resolving]
  - Off label use [Unknown]
  - Cellulitis [Recovered/Resolved]
  - Septic shock [Recovered/Resolved]
  - Aggression [Unknown]
  - Breathing-related sleep disorder [Unknown]
  - Cognitive disorder [Recovering/Resolving]
  - Infection [Unknown]
  - Encephalitis autoimmune [Recovering/Resolving]
  - Condition aggravated [Recovering/Resolving]

NARRATIVE: CASE EVENT DATE: 20170101
